FAERS Safety Report 8606258-7 (Version None)
Quarter: 2012Q3

REPORT INFORMATION
  Report Type: 
  Country: None (occurrence: None)
  Receive Date: 20120820
  Receipt Date: 20120608
  Transmission Date: 20120928
  Serious: Yes (Death, Life-Threatening)
  Sender: FDA-Public Use
  Company Number: JP-ROCHE-1102547

PATIENT
  Sex: Male

DRUGS (3)
  1. CARBOPLATIN [Suspect]
     Indication: LUNG ADENOCARCINOMA
     Route: 042
  2. AVASTIN [Suspect]
     Indication: LUNG ADENOCARCINOMA
     Route: 042
  3. PEMETREXED [Suspect]
     Indication: LUNG ADENOCARCINOMA
     Route: 042

REACTIONS (2)
  - HAEMOPTYSIS [None]
  - PNEUMONIA ASPIRATION [None]
